FAERS Safety Report 13900339 (Version 1)
Quarter: 2017Q3

REPORT INFORMATION
  Report Type: Spontaneous
  Country: US (occurrence: None)
  Receive Date: 20170824
  Receipt Date: 20170824
  Transmission Date: 20171127
  Serious: Yes (Other)
  Sender: FDA-Public Use
  Company Number: None

PATIENT
  Sex: Female

DRUGS (1)
  1. PROLIA [Suspect]
     Active Substance: DENOSUMAB
     Dosage: 60MG/ML Q 6 MONTHS SQ
     Route: 058
     Dates: start: 201702

REACTIONS (2)
  - Therapy cessation [None]
  - Angina pectoris [None]
